FAERS Safety Report 5146624-8 (Version None)
Quarter: 2006Q4

REPORT INFORMATION
  Report Type: 
  Country: None (occurrence: None)
  Receive Date: 20061109
  Receipt Date: 20061027
  Transmission Date: 20070319
  Serious: Yes (Other)
  Sender: FDA-Public Use
  Company Number: PHHO2006BR17843

PATIENT
  Age: 72 Year
  Sex: Male
  Weight: 87 kg

DRUGS (3)
  1. TRILEPTAL [Suspect]
     Dosage: 150 MG, TID
     Route: 048
     Dates: start: 20060909
  2. TRILEPTAL [Suspect]
     Dosage: 300 MG, BID
     Route: 048
     Dates: start: 20060909
  3. TRILEPTAL [Suspect]
     Dosage: 600 MG, BID
     Route: 048
     Dates: start: 20061010, end: 20061024

REACTIONS (9)
  - HALLUCINATION [None]
  - HYPERHIDROSIS [None]
  - MUSCLE RIGIDITY [None]
  - NAUSEA [None]
  - NIGHTMARE [None]
  - SLEEP DISORDER [None]
  - SYNCOPE [None]
  - TREMOR [None]
  - VOMITING [None]
